FAERS Safety Report 6234593-9 (Version None)
Quarter: 2009Q2

REPORT INFORMATION
  Report Type: 
  Country: None (occurrence: None)
  Receive Date: 20090618
  Receipt Date: 20090609
  Transmission Date: 20091009
  Serious: Yes (Other)
  Sender: FDA-Public Use
  Company Number: US-AMGEN-KDL336253

PATIENT
  Sex: Female
  Weight: 74.9 kg

DRUGS (9)
  1. ENBREL [Suspect]
     Indication: PSORIATIC ARTHROPATHY
     Route: 058
     Dates: start: 20090211, end: 20090302
  2. METHOTREXATE [Concomitant]
     Route: 030
     Dates: start: 20081119
  3. VITAMIN D [Concomitant]
     Dates: start: 20081119
  4. VITAMIN D3 [Concomitant]
     Dates: start: 20090211
  5. PRILOSEC [Concomitant]
  6. CLONIDINE [Concomitant]
  7. EXCEDRIN P.M. [Concomitant]
  8. COD-LIVER OIL [Concomitant]
  9. LOPID [Concomitant]
     Dates: end: 20090211

REACTIONS (11)
  - ABDOMINAL DISTENSION [None]
  - BLOOD PRESSURE INCREASED [None]
  - DIARRHOEA [None]
  - FATIGUE [None]
  - FLATULENCE [None]
  - HYPERSENSITIVITY [None]
  - MALAISE [None]
  - NAUSEA [None]
  - PARAESTHESIA [None]
  - PRURITUS [None]
  - VISION BLURRED [None]
